FAERS Safety Report 18099084 (Version 1)
Quarter: 2020Q3

REPORT INFORMATION
  Report Type: Spontaneous
  Country: US (occurrence: US)
  Receive Date: 20200731
  Receipt Date: 20200731
  Transmission Date: 20201103
  Serious: Yes (Other)
  Sender: FDA-Public Use
  Company Number: None

PATIENT
  Age: 76 Year
  Sex: Female
  Weight: 51.75 kg

DRUGS (9)
  1. PROLIA [Suspect]
     Active Substance: DENOSUMAB
     Indication: OSTEOPOROSIS
     Dosage: ?          OTHER FREQUENCY:ONCE EVERY 6 MONTH;OTHER ROUTE:INJECTION?
     Dates: start: 20190930, end: 20200330
  2. ZOCOR [Concomitant]
     Active Substance: SIMVASTATIN
  3. PRESERVISION [Concomitant]
     Active Substance: MINERALS\VITAMINS
  4. ZOLOFT [Concomitant]
     Active Substance: SERTRALINE HYDROCHLORIDE
  5. CALTRATE 6?? PLUS D [Concomitant]
  6. FOLIC ACID. [Concomitant]
     Active Substance: FOLIC ACID
  7. NAPROXEN. [Suspect]
     Active Substance: NAPROXEN
  8. METHOTREXATE. [Concomitant]
     Active Substance: METHOTREXATE
  9. AREDS 2 FORMULA [Concomitant]

REACTIONS (8)
  - Back pain [None]
  - Gait disturbance [None]
  - Impaired quality of life [None]
  - Pain in extremity [None]
  - Muscle spasms [None]
  - Bone pain [None]
  - Gastrointestinal disorder [None]
  - Fatigue [None]

NARRATIVE: CASE EVENT DATE: 20200403
